FAERS Safety Report 18755103 (Version 1)
Quarter: 2021Q1

REPORT INFORMATION
  Report Type: Spontaneous
  Country: US (occurrence: US)
  Receive Date: 20210115
  Receipt Date: 20210115
  Transmission Date: 20210419
  Serious: Yes (Hospitalization)
  Sender: FDA-Public Use
  Company Number: None

PATIENT
  Age: 57 Year
  Sex: Female
  Weight: 73.4 kg

DRUGS (1)
  1. ASPIRIN (27223) [Suspect]
     Active Substance: ASPIRIN
     Indication: DRUG THERAPY
     Dates: end: 20200623

REACTIONS (3)
  - Aphasia [None]
  - Hypoaesthesia [None]
  - Speech disorder [None]

NARRATIVE: CASE EVENT DATE: 20200624
